FAERS Safety Report 9365705 (Version 1)
Quarter: 2013Q2

REPORT INFORMATION
  Report Type: Spontaneous
  Country: US (occurrence: None)
  Receive Date: 20130624
  Receipt Date: 20130624
  Transmission Date: 20140414
  Serious: Yes (Hospitalization)
  Sender: FDA-Public Use
  Company Number: None

PATIENT
  Age: 62 Year
  Sex: Male
  Weight: 73 kg

DRUGS (1)
  1. ABIRATERONE [Suspect]
     Indication: PROSTATE CANCER METASTATIC
     Dates: start: 20130605, end: 20130620

REACTIONS (4)
  - Tinnitus [None]
  - Deafness neurosensory [None]
  - Neoplasm of orbit [None]
  - Metastases to eye [None]
